FAERS Safety Report 8142798 (Version 10)
Quarter: 2014Q1

REPORT INFORMATION
  Report Type: Spontaneous
  Country: GB (occurrence: GB)
  Receive Date: 20110919
  Receipt Date: 20140130
  Transmission Date: 20141002
  Serious: Yes (Other)
  Sender: FDA-Public Use
  Company Number: PHFR2010GB05995

PATIENT
  Age: 27 Year
  Sex: Male

DRUGS (8)
  1. CLOZARIL [Suspect]
     Indication: SCHIZOPHRENIA
     Route: 048
     Dates: start: 20070726
  2. CLOZARIL [Suspect]
     Dosage: 100 MG MANE 300 MG NOCTE
     Route: 048
  3. CLOZARIL [Suspect]
     Dosage: 575 MG, UNK
     Route: 048
  4. SULPIRIDE [Concomitant]
     Dosage: 300 MG MANE 400 MG NOCTE
  5. PROCYCLIDINE [Concomitant]
     Dosage: 5 MG, TID
  6. DIAZEPAM [Concomitant]
     Dosage: 5 MG, PRN
  7. VALPROATE SODIUM [Concomitant]
     Indication: DEPRESSION
     Dosage: 800 MG, UNK
     Route: 048
     Dates: start: 20090818
  8. FLUOXETIN [Concomitant]
     Indication: DEPRESSION
     Dosage: 40 MG, UNK
     Route: 048
     Dates: start: 20100413

REACTIONS (2)
  - Differential white blood cell count abnormal [Not Recovered/Not Resolved]
  - Eosinophil count increased [Unknown]
